FAERS Safety Report 6261324-9 (Version None)
Quarter: 2009Q3

REPORT INFORMATION
  Report Type: 
  Country: None (occurrence: None)
  Receive Date: 20090709
  Receipt Date: 20090414
  Transmission Date: 20100115
  Serious: No
  Sender: FDA-Public Use
  Company Number: US-KINGPHARMUSA00001-K200900440

PATIENT
  Sex: Female
  Weight: 63.492 kg

DRUGS (4)
  1. LEVOXYL [Suspect]
     Indication: HORMONE REPLACEMENT THERAPY
     Dosage: 112 MCG, QD
     Route: 048
     Dates: start: 20080401
  2. LEVOXYL [Suspect]
     Dosage: 125 MCG, QD
     Route: 048
  3. CALCIUM                            /01034401/ [Concomitant]
     Indication: BLOOD CALCIUM
     Dosage: UNK
     Route: 048
     Dates: start: 20080601, end: 20090408
  4. MULTIPLE VITAMINS [Concomitant]
     Dosage: UNK
     Route: 048
     Dates: end: 20090408

REACTIONS (9)
  - BLOOD CALCIUM DECREASED [None]
  - BLOOD TEST ABNORMAL [None]
  - DRUG EFFECT DECREASED [None]
  - DRY SKIN [None]
  - FATIGUE [None]
  - HAIR TEXTURE ABNORMAL [None]
  - ONYCHOCLASIS [None]
  - TEMPERATURE INTOLERANCE [None]
  - WEIGHT INCREASED [None]
